FAERS Safety Report 10755280 (Version 3)
Quarter: 2018Q1

REPORT INFORMATION
  Report Type: Report from Study
  Country: AR (occurrence: AR)
  Receive Date: 20150202
  Receipt Date: 20180330
  Transmission Date: 20180508
  Serious: Yes (Death, Hospitalization)
  Sender: FDA-Public Use
  Company Number: AR-BRISTOL-MYERS SQUIBB COMPANY-20589313

PATIENT
  Age: 63 Year
  Sex: Male

DRUGS (3)
  1. CARBOPLATIN. [Suspect]
     Active Substance: CARBOPLATIN
     Indication: NON-SMALL CELL LUNG CANCER
     Dosage: 1 DOSAGE = 639.9 UNITS NOT PROVIDED
     Route: 042
     Dates: start: 20131219, end: 20140203
  2. IPILIMUMAB [Suspect]
     Active Substance: IPILIMUMAB
     Indication: NON-SMALL CELL LUNG CANCER
     Dosage: 744 MG, UNK
     Route: 042
     Dates: start: 20140203, end: 20140203
  3. PACLITAXEL. [Suspect]
     Active Substance: PACLITAXEL
     Indication: NON-SMALL CELL LUNG CANCER
     Dosage: 318 MG, UNK
     Route: 042
     Dates: start: 20131219, end: 20140203

REACTIONS (2)
  - Crohn^s disease [Not Recovered/Not Resolved]
  - Post procedural complication [Fatal]

NARRATIVE: CASE EVENT DATE: 20140327
